FAERS Safety Report 5707660-3 (Version None)
Quarter: 2008Q2

REPORT INFORMATION
  Report Type: 
  Country: None (occurrence: None)
  Receive Date: 20080415
  Receipt Date: 20080407
  Transmission Date: 20081010
  Serious: Yes (Other)
  Sender: FDA-Public Use
  Company Number: 2008008618

PATIENT
  Age: 43 Year
  Sex: Male
  Weight: 86.2 kg

DRUGS (1)
  1. ROGAINE [Suspect]
     Indication: ALOPECIA
     Dosage: 1/2 CAPFUL, 1X FIRST AND 2X NEXT 2 DAYS, TOPICAL
     Route: 061
     Dates: start: 20080331, end: 20080403

REACTIONS (6)
  - ERYTHEMA [None]
  - EYE SWELLING [None]
  - PRURITUS [None]
  - SKIN EXFOLIATION [None]
  - SKIN WRINKLING [None]
  - SUNBURN [None]
